FAERS Safety Report 24005966 (Version 1)
Quarter: 2024Q2

REPORT INFORMATION
  Report Type: Report from Study
  Country: US (occurrence: US)
  Receive Date: 20240624
  Receipt Date: 20240624
  Transmission Date: 20240716
  Serious: Yes (Hospitalization)
  Sender: FDA-Public Use
  Company Number: US-BAYER-2024A076356

PATIENT
  Age: 79 Year
  Sex: Female

DRUGS (3)
  1. STIVARGA [Suspect]
     Active Substance: REGORAFENIB\REGORAFENIB MONOHYDRATE
     Indication: Colon cancer
     Dosage: 80 MG, QD
     Dates: start: 20240509, end: 20240515
  2. STIVARGA [Suspect]
     Active Substance: REGORAFENIB\REGORAFENIB MONOHYDRATE
     Indication: Colon cancer
     Dosage: 120 MG, QD
     Dates: start: 20240516, end: 20240522
  3. STIVARGA [Suspect]
     Active Substance: REGORAFENIB\REGORAFENIB MONOHYDRATE
     Indication: Colon cancer
     Dosage: 160 MG, QD
     Dates: start: 20240523, end: 20240529

REACTIONS (5)
  - Illness [Recovering/Resolving]
  - Loss of consciousness [Recovering/Resolving]
  - Fall [Recovering/Resolving]
  - Asthenia [Unknown]
  - Off label use [None]

NARRATIVE: CASE EVENT DATE: 20240501
